FAERS Safety Report 11375028 (Version 3)
Quarter: 2017Q3

REPORT INFORMATION
  Report Type: Spontaneous
  Country: US (occurrence: US)
  Receive Date: 20150813
  Receipt Date: 20170928
  Transmission Date: 20171127
  Serious: Yes (Hospitalization, Other)
  Sender: FDA-Public Use
  Company Number: US-ASTRAZENECA-2015SE76240

PATIENT
  Age: 68 Year
  Sex: Female
  Weight: 88 kg

DRUGS (21)
  1. DOXYCYCLINE. [Suspect]
     Active Substance: DOXYCYCLINE
     Route: 065
  2. FLAGYL [Suspect]
     Active Substance: METRONIDAZOLE\METRONIDAZOLE HYDROCHLORIDE
     Route: 065
  3. VALIUM [Concomitant]
     Active Substance: DIAZEPAM
     Dosage: 10.0MG AS REQUIRED
  4. ALBUTEROL SULFATE. [Concomitant]
     Active Substance: ALBUTEROL SULFATE
     Dosage: THREE TIMES A DAY
  5. PROZAC [Concomitant]
     Active Substance: FLUOXETINE HYDROCHLORIDE
     Indication: DEPRESSION
  6. FLUOXETINE [Concomitant]
     Active Substance: FLUOXETINE HYDROCHLORIDE
  7. TAGRISSO [Suspect]
     Active Substance: OSIMERTINIB
     Indication: LUNG NEOPLASM MALIGNANT
     Route: 048
     Dates: start: 20170901
  8. IBUPROFEN. [Concomitant]
     Active Substance: IBUPROFEN
     Indication: PAIN
     Dosage: 800.0MG AS REQUIRED
  9. ALBUTEROL SULFATE. [Concomitant]
     Active Substance: ALBUTEROL SULFATE
     Dosage: TWO TIMES A DAY
  10. FLONASE [Concomitant]
     Active Substance: FLUTICASONE PROPIONATE
  11. VITAMIN D [Concomitant]
     Active Substance: CHOLECALCIFEROL
     Indication: SUPPLEMENTATION THERAPY
  12. SYMBICORT [Suspect]
     Active Substance: BUDESONIDE\FORMOTEROL FUMARATE DIHYDRATE
     Indication: ASTHMA
     Dosage: 2 PUFFS, TWO TIMES A DAY
     Route: 055
  13. VALIUM [Concomitant]
     Active Substance: DIAZEPAM
     Dosage: INCREASED AS REQUIRED
  14. LOSARTAN-HCTZ [Concomitant]
     Active Substance: HYDROCHLOROTHIAZIDE\LOSARTAN
  15. ACETAMINOPHEN. [Concomitant]
     Active Substance: ACETAMINOPHEN
  16. LISINOPRIL. [Suspect]
     Active Substance: LISINOPRIL
     Route: 048
  17. ATORVASTATIN [Concomitant]
     Active Substance: ATORVASTATIN
     Indication: BLOOD CHOLESTEROL INCREASED
  18. ALBUTEROL. [Concomitant]
     Active Substance: ALBUTEROL
  19. HYDROCODONE [Concomitant]
     Active Substance: HYDROCODONE
     Indication: PAIN
     Dosage: AS REQUIRED
  20. ALBUTEROL SULFATE. [Concomitant]
     Active Substance: ALBUTEROL SULFATE
     Dosage: EVERY FOUR HOURS
  21. DIAZEPAM. [Concomitant]
     Active Substance: DIAZEPAM

REACTIONS (12)
  - Chest pain [Recovering/Resolving]
  - Bronchitis [Recovered/Resolved]
  - Drug hypersensitivity [Unknown]
  - Back pain [Unknown]
  - Pain in extremity [Unknown]
  - Pneumonia [Recovering/Resolving]
  - Lung neoplasm malignant [Not Recovered/Not Resolved]
  - Abdominal discomfort [Unknown]
  - Hypotension [Recovering/Resolving]
  - Swelling face [Recovered/Resolved]
  - Depression [Unknown]
  - Arthralgia [Unknown]

NARRATIVE: CASE EVENT DATE: 2015
